FAERS Safety Report 6058235-0 (Version None)
Quarter: 2009Q1

REPORT INFORMATION
  Report Type: 
  Country: None (occurrence: None)
  Receive Date: 20090130
  Receipt Date: 20090119
  Transmission Date: 20090719
  Serious: Yes (Other)
  Sender: FDA-Public Use
  Company Number: BR-PFIZER INC-2008092773

PATIENT

DRUGS (10)
  1. FELDENE [Suspect]
     Indication: BONE PAIN
     Dosage: 20 MG, AS NEEDED
     Route: 048
     Dates: start: 19970101
  2. FELDENE [Suspect]
     Indication: TENDONITIS
  3. FELDENE [Suspect]
     Indication: PAIN
  4. FELDENE [Suspect]
     Dosage: 6 DF, UNK
     Route: 030
  5. PROPRANOLOL HYDROCHLORIDE + HYDROCHLOROTHIAZIDE [Concomitant]
  6. ENALAPRIL MALEATE [Concomitant]
     Dosage: UNK
  7. PHARMATON [Concomitant]
  8. MULTI-VITAMINS [Concomitant]
  9. TEBONIN [Concomitant]
     Dosage: UNK
  10. VENALOT [Concomitant]
     Dosage: UNK

REACTIONS (7)
  - ABDOMINAL PAIN [None]
  - GASTRIC ULCER [None]
  - MASS [None]
  - MEMORY IMPAIRMENT [None]
  - PAIN IN EXTREMITY [None]
  - TENDONITIS [None]
  - THERMAL BURN [None]
